FAERS Safety Report 11371718 (Version 1)
Quarter: 2015Q3

REPORT INFORMATION
  Report Type: Spontaneous
  Country: JP (occurrence: JP)
  Receive Date: 20150812
  Receipt Date: 20150812
  Transmission Date: 20151125
  Serious: Yes (Other)
  Sender: FDA-Public Use
  Company Number: JP-JT-EVA201500847KERYXP

PATIENT

DRUGS (8)
  1. BUFFERIN [Concomitant]
     Active Substance: ASPIRIN
     Indication: ARRHYTHMIA PROPHYLAXIS
     Route: 048
  2. RIONA [Suspect]
     Active Substance: FERRIC CITRATE ANHYDROUS
     Indication: HYPERPHOSPHATAEMIA
     Dosage: 250 MG, TID
     Route: 048
     Dates: start: 20141212, end: 20150313
  3. NESP [Concomitant]
     Active Substance: DARBEPOETIN ALFA
     Dosage: 40 ?G, UNK
     Route: 042
     Dates: start: 20150211, end: 20150211
  4. NESP [Concomitant]
     Active Substance: DARBEPOETIN ALFA
     Dosage: 30 ?G, UNK
     Route: 042
     Dates: start: 20150311, end: 20150311
  5. BUFFERIN [Concomitant]
     Active Substance: ASPIRIN
     Indication: ARRHYTHMIA PROPHYLAXIS
     Dosage: 81 MG, UNK
     Route: 048
  6. CALTAN [Concomitant]
     Active Substance: CALCIUM CARBONATE
     Route: 048
  7. NESP [Concomitant]
     Active Substance: DARBEPOETIN ALFA
     Indication: PRODUCT USED FOR UNKNOWN INDICATION
     Dosage: 60 ?G, UNK
     Route: 042
     Dates: start: 20150123, end: 20150123
  8. CALTAN [Concomitant]
     Active Substance: CALCIUM CARBONATE
     Indication: HYPERPHOSPHATAEMIA
     Dosage: 1000 MG, UNK
     Route: 048

REACTIONS (1)
  - Haemoglobin increased [Recovering/Resolving]

NARRATIVE: CASE EVENT DATE: 20150309
